FAERS Safety Report 12555595 (Version 1)
Quarter: 2016Q3

REPORT INFORMATION
  Report Type: Spontaneous
  Country: US (occurrence: None)
  Receive Date: 20160713
  Receipt Date: 20160713
  Transmission Date: 20161109
  Serious: Yes (Other)
  Sender: FDA-Public Use
  Company Number: None

PATIENT
  Age: 61 Year
  Sex: Male
  Weight: 101.61 kg

DRUGS (10)
  1. FLECANIDE [Concomitant]
     Active Substance: FLECAINIDE
  2. VALERIAN ROOT [Concomitant]
     Active Substance: VALERIAN
  3. BI-PAP [Concomitant]
     Active Substance: DEVICE
  4. METOPROLOL SUCC ER 50 MG TAB, 50 MG PAR PHARM [Suspect]
     Active Substance: METOPROLOL SUCCINATE
     Indication: ATRIAL FIBRILLATION
     Dosage: 90 TABLET(S) ONCE A DAY TAKEN BY MOUTH
     Route: 048
  5. ELIQUIS [Concomitant]
     Active Substance: APIXABAN
  6. ASHWAGANDA [Concomitant]
  7. FISH OIL [Concomitant]
     Active Substance: FISH OIL
  8. MULTIVITAMIN [Concomitant]
     Active Substance: VITAMINS
  9. METHADONE [Concomitant]
     Active Substance: METHADONE HYDROCHLORIDE
  10. CURCUMIN [Concomitant]
     Active Substance: CURCUMIN

REACTIONS (6)
  - Heart rate increased [None]
  - Drug effect decreased [None]
  - Product quality issue [None]
  - Drug effect delayed [None]
  - Middle insomnia [None]
  - Atrial fibrillation [None]

NARRATIVE: CASE EVENT DATE: 20160709
